FAERS Safety Report 5943875-7 (Version None)
Quarter: 2008Q4

REPORT INFORMATION
  Report Type: 
  Country: None (occurrence: None)
  Receive Date: 20081106
  Receipt Date: 20081031
  Transmission Date: 20090506
  Serious: Yes (Hospitalization)
  Sender: FDA-Public Use
  Company Number: FR-SANOFI-SYNTHELABO-A02200803281

PATIENT
  Sex: Female

DRUGS (6)
  1. NOCTAMIDE [Suspect]
     Indication: INSOMNIA
     Route: 048
     Dates: start: 20081003, end: 20081008
  2. ZOLPIDEM [Suspect]
     Indication: INSOMNIA
     Route: 048
     Dates: start: 20081001, end: 20081008
  3. XANAX [Suspect]
     Indication: ANXIETY
     Dosage: UNK
     Route: 048
     Dates: end: 20081008
  4. STABLON [Suspect]
     Indication: DEPRESSION
     Route: 048
     Dates: end: 20081008
  5. ARICEPT [Suspect]
     Indication: DEMENTIA ALZHEIMER'S TYPE
     Route: 048
     Dates: start: 20081004, end: 20081008
  6. ZYPREXA [Suspect]
     Indication: SCHIZOPHRENIA
     Route: 048
     Dates: start: 20080929, end: 20081008

REACTIONS (1)
  - AGRANULOCYTOSIS [None]
